FAERS Safety Report 20757522 (Version 1)
Quarter: 2022Q2

REPORT INFORMATION
  Report Type: Spontaneous
  Country: US (occurrence: None)
  Receive Date: 20220426
  Receipt Date: 20220426
  Transmission Date: 20220721
  Serious: Yes (unspecified)
  Sender: FDA-Public Use
  Company Number: None

PATIENT
  Age: 24 Year
  Sex: Female
  Weight: 79.38 kg

DRUGS (1)
  1. PARAGARD T 380A [Suspect]
     Active Substance: COPPER

REACTIONS (7)
  - Complication associated with device [None]
  - Heavy menstrual bleeding [None]
  - Weight increased [None]
  - Abdominal distension [None]
  - Embedded device [None]
  - Central pain syndrome [None]
  - Neuralgia [None]

NARRATIVE: CASE EVENT DATE: 20210324
